FAERS Safety Report 6420032-1 (Version None)
Quarter: 2009Q4

REPORT INFORMATION
  Report Type: 
  Country: None (occurrence: None)
  Receive Date: 20091029
  Receipt Date: 20090618
  Transmission Date: 20100525
  Serious: No
  Sender: FDA-Public Use
  Company Number: A0778981A

PATIENT
  Age: 49 Year
  Sex: Female

DRUGS (7)
  1. SUMATRIPTAN [Suspect]
     Indication: MIGRAINE
     Dosage: 6MG AS REQUIRED
     Route: 045
  2. AMBIEN [Concomitant]
     Indication: SLEEP DISORDER
     Route: 048
     Dates: start: 20080401
  3. PERCOCET [Concomitant]
     Indication: PAIN
     Dates: start: 20080402
  4. AMRIX [Concomitant]
     Dosage: 10MG TWICE PER DAY
     Dates: start: 20080502
  5. IBUPROFEN [Concomitant]
     Indication: PAIN
     Dosage: 600MG AS REQUIRED
     Dates: start: 20090101
  6. ALPRAZOLAM [Concomitant]
     Indication: ANXIETY
     Dosage: .25MG THREE TIMES PER DAY
     Dates: start: 20080401
  7. HCTZ/ TRIAM [Concomitant]
     Dates: start: 20080101

REACTIONS (2)
  - DRUG INEFFECTIVE [None]
  - PRODUCT QUALITY ISSUE [None]
